FAERS Safety Report 23734206 (Version 3)
Quarter: 2024Q3

REPORT INFORMATION
  Report Type: Report from Study
  Country: CA (occurrence: CA)
  Receive Date: 20240412
  Receipt Date: 20240918
  Transmission Date: 20241017
  Serious: Yes (Hospitalization, Other)
  Sender: AMGEN
  Company Number: CA-AMGEN-CANSL2023167890

PATIENT
  Age: 35 Year
  Sex: Female

DRUGS (4)
  1. AVSOLA [Suspect]
     Active Substance: INFLIXIMAB-AXXQ
     Indication: Crohn^s disease
     Dosage: 400 MILLIGRAM, Q7WK
     Route: 042
     Dates: start: 20220208
  2. AVSOLA [Suspect]
     Active Substance: INFLIXIMAB-AXXQ
     Dosage: 400 MILLIGRAM, Q7WK
     Route: 042
  3. AVSOLA [Suspect]
     Active Substance: INFLIXIMAB-AXXQ
     Dosage: 400 MILLIGRAM, Q7WK
     Route: 042
  4. AVSOLA [Suspect]
     Active Substance: INFLIXIMAB-AXXQ
     Dosage: 400 MILLIGRAM, Q7WK
     Route: 042

REACTIONS (10)
  - Erythema multiforme [Unknown]
  - Oedema [Unknown]
  - Rash papular [Not Recovered/Not Resolved]
  - Erythema [Unknown]
  - Off label use [Unknown]
  - Hypertension [Unknown]
  - Abdominal pain [Unknown]
  - Diarrhoea [Unknown]
  - Nasal dryness [Recovered/Resolved]
  - Nasal disorder [Unknown]

NARRATIVE: CASE EVENT DATE: 20220208
